FAERS Safety Report 17157306 (Version 1)
Quarter: 2019Q4

REPORT INFORMATION
  Report Type: Spontaneous
  Country: NL (occurrence: NL)
  Receive Date: 20191216
  Receipt Date: 20191216
  Transmission Date: 20200122
  Serious: Yes (Other)
  Sender: FDA-Public Use
  Company Number: NL-MYLANLABS-2019M1123066

PATIENT
  Age: 67 Year
  Sex: Male
  Weight: 56 kg

DRUGS (20)
  1. CLOPIDOGREL [Concomitant]
     Active Substance: CLOPIDOGREL BISULFATE
     Dosage: 1DD1
  2. BUDESONIDE W/FORMOTEROL [Concomitant]
     Active Substance: BUDESONIDE\FORMOTEROL
     Dosage: 3DD1
  3. NATRIUMCHLORIDE [Concomitant]
     Active Substance: SODIUM CHLORIDE
     Dosage: UNK
  4. PANTOPRAZOL                        /01263201/ [Concomitant]
     Active Substance: PANTOPRAZOLE
     Dosage: 1DD1
  5. ALENDRONINEZUUR A [Concomitant]
     Active Substance: ALENDRONATE SODIUM
     Dosage: 1XPER WEEK 70MG
  6. DALTEPARINE SODIQUE [Concomitant]
     Active Substance: DALTEPARIN SODIUM
     Dosage: 1DD2500IE, (2500/0.2 INTERNATIONAL UNIT PER MILLILITRE)
  7. MONTELUKAST                        /01362602/ [Concomitant]
     Active Substance: MONTELUKAST SODIUM
     Dosage: 1DD1
  8. METOPROLOL SUCCINATE. [Concomitant]
     Active Substance: METOPROLOL SUCCINATE
     Dosage: 1DD1
  9. BUMETANIDE. [Concomitant]
     Active Substance: BUMETANIDE
     Dosage: UNK, (5/50 MILLIGRAM PER MILLILITRE)
  10. AMIODARON HCL MYLAN 200 MG, TABLETTEN [Suspect]
     Active Substance: AMIODARONE HYDROCHLORIDE
     Indication: VENTRICULAR TACHYCARDIA
     Dosage: 1D200MG
     Route: 048
     Dates: start: 20160703, end: 20190612
  11. KALIUMCHLORIDE [Concomitant]
     Dosage: 3DD600MG
  12. EPLERENONE. [Concomitant]
     Active Substance: EPLERENONE
     Dosage: 1DD50MG
  13. SACUBITRIL W/VALSARTAN [Concomitant]
     Active Substance: SACUBITRIL\VALSARTAN
     Dosage: 2DD1
  14. TERBUTALINE [Concomitant]
     Active Substance: TERBUTALINE
     Dosage: ZO NODIG 4DD1
  15. PRAVASTATINE                       /00880401/ [Concomitant]
     Active Substance: PRAVASTATIN
     Dosage: 1DD1
  16. CEFUROXIM                          /00454601/ [Concomitant]
     Active Substance: CEFUROXIME
     Dosage: 2DD1500MG, (1500/50MILLIGRAM PER MILLILITRE)
  17. MACROGOL [Concomitant]
     Active Substance: POLYETHYLENE GLYCOLS
     Dosage: ZO NODIG 1DD1
  18. LIDOCAINE. [Concomitant]
     Active Substance: LIDOCAINE
     Dosage: ZO NODIG 4DD 100MG
  19. BUMETANIDE. [Concomitant]
     Active Substance: BUMETANIDE
     Dosage: 2DD0,5 STUKS
  20. PARACETAMOL [Concomitant]
     Active Substance: ACETAMINOPHEN
     Dosage: 4DD1000MG

REACTIONS (2)
  - Neuropathy peripheral [Not Recovered/Not Resolved]
  - Asthenia [Not Recovered/Not Resolved]

NARRATIVE: CASE EVENT DATE: 201902
